FAERS Safety Report 10660388 (Version 2)
Quarter: 2014Q4

REPORT INFORMATION
  Report Type: Spontaneous
  Country: US (occurrence: US)
  Receive Date: 20141217
  Receipt Date: 20141217
  Transmission Date: 20150529
  Serious: No
  Sender: FDA-Public Use
  Company Number: US-GLAXOSMITHKLINE-A1086896A

PATIENT

DRUGS (1)
  1. VOTRIENT [Suspect]
     Active Substance: PAZOPANIB HYDROCHLORIDE
     Indication: RENAL CELL CARCINOMA
     Dosage: 800 MG
     Route: 065
     Dates: start: 20140814

REACTIONS (5)
  - Pain in extremity [Unknown]
  - Fatigue [Unknown]
  - Blood bilirubin increased [Unknown]
  - Nausea [Unknown]
  - Constipation [Unknown]
